FAERS Safety Report 19688884 (Version 1)
Quarter: 2021Q3

REPORT INFORMATION
  Report Type: Spontaneous
  Country: US (occurrence: US)
  Receive Date: 20210812
  Receipt Date: 20210812
  Transmission Date: 20211014
  Serious: No
  Sender: FDA-Public Use
  Company Number: US-SA-2021SA264282

PATIENT
  Age: 3 Year
  Sex: Male

DRUGS (8)
  1. DUPIXENT [Suspect]
     Active Substance: DUPILUMAB
     Indication: DERMATITIS ATOPIC
     Dosage: 300 MG, QM
     Route: 058
     Dates: start: 20190806
  2. ZYRTEC?D [Concomitant]
     Active Substance: CETIRIZINE HYDROCHLORIDE\PSEUDOEPHEDRINE HYDROCHLORIDE
  3. HYDROCORTISONE. [Concomitant]
     Active Substance: HYDROCORTISONE
  4. MUPIROCIN. [Concomitant]
     Active Substance: MUPIROCIN
  5. TACROLIMUS. [Concomitant]
     Active Substance: TACROLIMUS
  6. ACYCLOVIR [ACICLOVIR] [Concomitant]
     Active Substance: ACYCLOVIR
  7. ALBUTEROL SULFATE HFA [Concomitant]
     Active Substance: ALBUTEROL SULFATE
  8. BETAMETHASONE ACETATE [Concomitant]
     Active Substance: BETAMETHASONE ACETATE

REACTIONS (6)
  - Rash macular [Unknown]
  - Product use issue [Unknown]
  - Therapeutic response shortened [Unknown]
  - Erythema [Unknown]
  - Sleep disorder [Unknown]
  - Pruritus [Unknown]

NARRATIVE: CASE EVENT DATE: 20190806
